FAERS Safety Report 5039215-0 (Version None)
Quarter: 2006Q2

REPORT INFORMATION
  Report Type: 
  Country: None (occurrence: None)
  Receive Date: 20060601
  Receipt Date: 20060119
  Transmission Date: 20061013
  Serious: No
  Sender: FDA-Public Use
  Company Number: 2006PV007315

PATIENT
  Age: 51 Year
  Sex: Female

DRUGS (6)
  1. BYETTA [Suspect]
     Indication: DIABETES MELLITUS NON-INSULIN-DEPENDENT
     Dosage: 5 MCB;BID;SC
     Route: 058
     Dates: start: 20060104
  2. GLUCOPHAGE [Concomitant]
  3. AVANDIA [Concomitant]
  4. PREVACID [Concomitant]
  5. REGLAN [Concomitant]
  6. ANTIVERT ^PFIZER^ [Concomitant]

REACTIONS (5)
  - BLOOD GLUCOSE INCREASED [None]
  - DRY MOUTH [None]
  - DYSPEPSIA [None]
  - EAR DISCOMFORT [None]
  - NAUSEA [None]
